FAERS Safety Report 12836699 (Version 4)
Quarter: 2021Q2

REPORT INFORMATION
  Report Type: Report from Study
  Country: US (occurrence: US)
  Receive Date: 20161011
  Receipt Date: 20210427
  Transmission Date: 20210716
  Serious: Yes (Life-Threatening, Hospitalization, Other)
  Sender: FDA-Public Use
  Company Number: US-ROCHE-1836076

PATIENT
  Age: 41 Year
  Sex: Female
  Weight: 80.36 kg

DRUGS (4)
  1. TASELISIB. [Suspect]
     Active Substance: TASELISIB
     Route: 048
     Dates: start: 20170809
  2. TRASTUZUMAB EMTANSINE [Suspect]
     Active Substance: ADO-TRASTUZUMAB EMTANSINE
     Route: 042
     Dates: start: 20170824
  3. TASELISIB. [Suspect]
     Active Substance: TASELISIB
     Indication: HER2 POSITIVE BREAST CANCER
     Dosage: DATE OF MOST RECENT DOSE PRIOR TO THE EVENT: 22/SEP/2016
     Route: 048
     Dates: start: 20160921
  4. TRASTUZUMAB EMTANSINE [Suspect]
     Active Substance: ADO-TRASTUZUMAB EMTANSINE
     Indication: HER2 POSITIVE BREAST CANCER
     Route: 042
     Dates: start: 20160921

REACTIONS (5)
  - Sepsis [Unknown]
  - Chest wall abscess [Unknown]
  - Cellulitis [Recovered/Resolved]
  - Vascular device infection [Unknown]
  - Cellulitis [Unknown]

NARRATIVE: CASE EVENT DATE: 20160921
